FAERS Safety Report 25288032 (Version 1)
Quarter: 2025Q2

REPORT INFORMATION
  Report Type: Spontaneous
  Country: NL (occurrence: NL)
  Receive Date: 20250509
  Receipt Date: 20250509
  Transmission Date: 20250717
  Serious: Yes (Disabling)
  Sender: TEVA
  Company Number: None

PATIENT
  Age: 53 Year
  Sex: Male
  Weight: 106 kg

DRUGS (5)
  1. ATORVASTATIN [Suspect]
     Active Substance: ATORVASTATIN
     Indication: Prophylaxis
     Dosage: BRAND NAME NOT SPECIFIED, 1 PIECE ONCE A DAY
     Route: 048
     Dates: start: 20210704, end: 20250414
  2. LISINOPRIL [Concomitant]
     Active Substance: LISINOPRIL
     Indication: Product used for unknown indication
     Route: 048
  3. MAAGZUURTABLET PANTOPRAZOL HTP [Concomitant]
     Indication: Product used for unknown indication
     Route: 048
  4. ELIQUIS [Concomitant]
     Active Substance: APIXABAN
     Indication: Product used for unknown indication
     Route: 048
  5. METOPROLOL [Concomitant]
     Active Substance: METOPROLOL
     Indication: Product used for unknown indication
     Route: 048

REACTIONS (1)
  - Tendon rupture [Not Recovered/Not Resolved]
